FAERS Safety Report 25037859 (Version 1)
Quarter: 2025Q1

REPORT INFORMATION
  Report Type: Spontaneous
  Country: CA (occurrence: CA)
  Receive Date: 20250304
  Receipt Date: 20250304
  Transmission Date: 20250408
  Serious: Yes (Hospitalization)
  Sender: PROACTIV
  Company Number: CA-The Proactiv LLC-2172159

PATIENT
  Age: 40 Year
  Sex: Female

DRUGS (4)
  1. PROACTIV SOLUTION RENEWING CLEANSER [Suspect]
     Active Substance: BENZOYL PEROXIDE
     Dates: start: 20250204, end: 20250210
  2. PROACTIV REVITALIZING TONER COMBINATION THERAPY ACNE TREATMENT [Suspect]
     Active Substance: SALICYLIC ACID
     Dates: start: 20250204, end: 20250210
  3. Proactiv Pore Cleansing Brush [Concomitant]
     Dates: start: 20250204, end: 20250210
  4. PROACTIV REPAIRING TREATMENT [Suspect]
     Active Substance: BENZOYL PEROXIDE
     Dates: start: 20250204, end: 20250210

REACTIONS (5)
  - Blister [Recovering/Resolving]
  - Skin infection [Recovering/Resolving]
  - Skin haemorrhage [Recovering/Resolving]
  - Skin erosion [Recovering/Resolving]
  - Eye swelling [Recovering/Resolving]

NARRATIVE: CASE EVENT DATE: 20250207
